FAERS Safety Report 4687705-2 (Version None)
Quarter: 2005Q2

REPORT INFORMATION
  Report Type: 
  Country: None (occurrence: None)
  Receive Date: 20050610
  Receipt Date: 20050603
  Transmission Date: 20051028
  Serious: Yes (Hospitalization)
  Sender: FDA-Public Use
  Company Number: 200511876FR

PATIENT
  Age: 71 Year
  Sex: Female

DRUGS (11)
  1. DAONIL FAIBLE 1.25 MG [Suspect]
     Indication: DIABETES MELLITUS NON-INSULIN-DEPENDENT
     Route: 048
     Dates: end: 20050409
  2. PLAVIX [Suspect]
     Route: 048
     Dates: start: 20050411, end: 20050408
  3. ZOMETA [Suspect]
     Route: 042
     Dates: start: 20050401, end: 20050401
  4. ALLOPURINOL [Suspect]
     Route: 048
     Dates: end: 20050408
  5. METFORMIN HCL [Suspect]
     Route: 048
     Dates: end: 20050408
  6. MICARDIS [Suspect]
     Route: 048
     Dates: end: 20050408
  7. PRAVASTATIN [Concomitant]
     Route: 048
     Dates: end: 20050408
  8. DOLIPRANE [Concomitant]
     Route: 048
     Dates: end: 20050408
  9. ADRIAMYCIN PFS [Concomitant]
     Dates: start: 20040901, end: 20041201
  10. DOCETAXEL [Concomitant]
     Dates: start: 20040901, end: 20041201
  11. XELODA [Concomitant]
     Route: 048
     Dates: start: 20050201

REACTIONS (1)
  - RENAL FAILURE ACUTE [None]
